FAERS Safety Report 24550638 (Version 1)
Quarter: 2024Q4

REPORT INFORMATION
  Report Type: Spontaneous
  Country: CA (occurrence: CA)
  Receive Date: 20241025
  Receipt Date: 20241025
  Transmission Date: 20250114
  Serious: Yes (Other)
  Sender: TEVA
  Company Number: CA-TEVA-VS-3255512

PATIENT
  Age: 73 Year
  Sex: Female

DRUGS (2)
  1. FENTANYL [Suspect]
     Active Substance: FENTANYL
     Indication: Product used for unknown indication
     Route: 065
  2. MIDAZOLAM [Suspect]
     Active Substance: MIDAZOLAM
     Indication: Product used for unknown indication
     Route: 065

REACTIONS (4)
  - Unresponsive to stimuli [Recovered/Resolved]
  - Discomfort [Recovered/Resolved]
  - Pain [Recovered/Resolved]
  - Depressed level of consciousness [Recovered/Resolved]
